FAERS Safety Report 13409442 (Version 4)
Quarter: 2017Q4

REPORT INFORMATION
  Report Type: Spontaneous
  Country: US (occurrence: US)
  Receive Date: 20170406
  Receipt Date: 20171226
  Transmission Date: 20180320
  Serious: Yes (Other)
  Sender: FDA-Public Use
  Company Number: US-JNJFOC-20170124765

PATIENT
  Age: 11 Year
  Sex: Male

DRUGS (22)
  1. RISPERDAL [Suspect]
     Active Substance: RISPERIDONE
     Indication: ATTENTION DEFICIT/HYPERACTIVITY DISORDER
     Route: 048
     Dates: start: 20130510, end: 20150515
  2. RISPERIDONE. [Suspect]
     Active Substance: RISPERIDONE
     Indication: AUTISM SPECTRUM DISORDER
     Route: 048
     Dates: end: 2009
  3. RISPERIDONE. [Suspect]
     Active Substance: RISPERIDONE
     Indication: AUTISM SPECTRUM DISORDER
     Route: 048
     Dates: end: 2009
  4. RISPERIDONE. [Suspect]
     Active Substance: RISPERIDONE
     Indication: AUTISM SPECTRUM DISORDER
     Route: 048
     Dates: start: 20120705
  5. RISPERDAL [Suspect]
     Active Substance: RISPERIDONE
     Indication: AUTISM SPECTRUM DISORDER
     Route: 048
     Dates: start: 20130701
  6. RISPERIDONE. [Suspect]
     Active Substance: RISPERIDONE
     Indication: RELAXATION THERAPY
     Route: 048
     Dates: start: 20110623
  7. RISPERIDONE. [Suspect]
     Active Substance: RISPERIDONE
     Indication: RELAXATION THERAPY
     Route: 048
     Dates: start: 20120703
  8. RISPERIDONE. [Suspect]
     Active Substance: RISPERIDONE
     Indication: RELAXATION THERAPY
     Route: 048
     Dates: start: 20130122
  9. RISPERDAL [Suspect]
     Active Substance: RISPERIDONE
     Indication: AUTISM SPECTRUM DISORDER
     Route: 048
     Dates: start: 20130510, end: 20150515
  10. RISPERDAL [Suspect]
     Active Substance: RISPERIDONE
     Indication: ATTENTION DEFICIT/HYPERACTIVITY DISORDER
     Route: 048
     Dates: start: 20130701
  11. RISPERIDONE. [Suspect]
     Active Substance: RISPERIDONE
     Indication: RELAXATION THERAPY
     Route: 048
     Dates: start: 20120103
  12. RISPERIDONE. [Suspect]
     Active Substance: RISPERIDONE
     Indication: RELAXATION THERAPY
     Route: 048
     Dates: end: 2009
  13. RISPERIDONE. [Suspect]
     Active Substance: RISPERIDONE
     Indication: AUTISM SPECTRUM DISORDER
     Route: 048
     Dates: start: 20120703
  14. RISPERIDONE. [Suspect]
     Active Substance: RISPERIDONE
     Indication: RELAXATION THERAPY
     Route: 048
     Dates: start: 20120705
  15. RISPERDAL [Suspect]
     Active Substance: RISPERIDONE
     Indication: AUTISM SPECTRUM DISORDER
     Route: 048
     Dates: start: 20110107, end: 2012
  16. RISPERIDONE. [Suspect]
     Active Substance: RISPERIDONE
     Indication: RELAXATION THERAPY
     Route: 048
     Dates: end: 2009
  17. RISPERIDONE. [Suspect]
     Active Substance: RISPERIDONE
     Indication: AUTISM SPECTRUM DISORDER
     Route: 048
     Dates: start: 20120103
  18. RISPERIDONE. [Suspect]
     Active Substance: RISPERIDONE
     Indication: RELAXATION THERAPY
     Route: 048
     Dates: start: 20130417
  19. RISPERDAL [Suspect]
     Active Substance: RISPERIDONE
     Indication: ATTENTION DEFICIT/HYPERACTIVITY DISORDER
     Route: 048
     Dates: start: 20110107, end: 2012
  20. RISPERIDONE. [Suspect]
     Active Substance: RISPERIDONE
     Indication: AUTISM SPECTRUM DISORDER
     Route: 048
     Dates: start: 20110623
  21. RISPERIDONE. [Suspect]
     Active Substance: RISPERIDONE
     Indication: AUTISM SPECTRUM DISORDER
     Route: 048
     Dates: start: 20130122
  22. RISPERIDONE. [Suspect]
     Active Substance: RISPERIDONE
     Indication: AUTISM SPECTRUM DISORDER
     Route: 048
     Dates: start: 20130417

REACTIONS (4)
  - Obesity [Unknown]
  - Emotional distress [Unknown]
  - Drug ineffective [Unknown]
  - Gynaecomastia [Unknown]

NARRATIVE: CASE EVENT DATE: 20130417
